FAERS Safety Report 7245070-0 (Version None)
Quarter: 2011Q1

REPORT INFORMATION
  Report Type: 
  Country: None (occurrence: None)
  Receive Date: 20110126
  Receipt Date: 20110124
  Transmission Date: 20110831
  Serious: Yes (Other)
  Sender: FDA-Public Use
  Company Number: US-JNJFOC-20110103087

PATIENT
  Sex: Female

DRUGS (6)
  1. DOXIL [Suspect]
     Indication: MULTIPLE MYELOMA
     Dosage: 8 CYCLES
     Route: 042
  2. VELCADE [Suspect]
     Indication: MULTIPLE MYELOMA
     Route: 065
  3. DEXAMETHASONE [Suspect]
     Route: 065
  4. DEXAMETHASONE [Suspect]
     Route: 065
  5. DEXAMETHASONE [Suspect]
     Indication: MULTIPLE MYELOMA
     Dosage: 8 CYCLES
     Route: 065
  6. VELCADE [Suspect]
     Dosage: 8 CYCLES
     Route: 065

REACTIONS (4)
  - PANCYTOPENIA [None]
  - CARDIOMYOPATHY [None]
  - PLASMACYTOMA [None]
  - MULTIPLE MYELOMA [None]
